FAERS Safety Report 23884267 (Version 1)
Quarter: 2024Q2

REPORT INFORMATION
  Report Type: Spontaneous
  Country: FR (occurrence: FR)
  Receive Date: 20240522
  Receipt Date: 20240522
  Transmission Date: 20240716
  Serious: Yes (Death)
  Sender: FDA-Public Use
  Company Number: None

PATIENT
  Age: 45 Year
  Sex: Female
  Weight: 37 kg

DRUGS (7)
  1. LAMOTRIGINE [Suspect]
     Active Substance: LAMOTRIGINE
     Indication: Product used for unknown indication
     Dosage: 200 MILLIGRAM, 1 TOTAL
     Route: 048
     Dates: start: 20240411, end: 20240411
  2. RISPERIDONE [Suspect]
     Active Substance: RISPERIDONE
     Indication: Product used for unknown indication
     Dosage: 4 MILLIGRAM, 1 TOTAL
     Route: 048
     Dates: start: 20240411, end: 20240411
  3. VALPROATE SODIUM [Suspect]
     Active Substance: VALPROATE SODIUM
     Indication: Product used for unknown indication
     Dosage: 1 GRAM, 1 TOTAL
     Route: 048
     Dates: start: 20240411, end: 20240411
  4. OXAZEPAM [Suspect]
     Active Substance: OXAZEPAM
     Indication: Product used for unknown indication
     Dosage: 20 MILLIGRAM, 1 TOTAL
     Route: 048
     Dates: start: 20240411, end: 20240411
  5. TOPIRAMATE [Suspect]
     Active Substance: TOPIRAMATE
     Indication: Product used for unknown indication
     Dosage: 100 MILLIGRAM, 1 TOTAL
     Route: 048
     Dates: start: 20240411, end: 20240411
  6. LACTULOSE [Concomitant]
     Active Substance: LACTULOSE
     Indication: Encephalopathy
     Dosage: 1 DOSAGE FORM, QD
     Route: 048
  7. DIOSMIN [Concomitant]
     Active Substance: DIOSMIN
     Indication: Product used for unknown indication
     Dosage: 600 MILLIGRAM, QD (0-600MG-0)
     Route: 048

REACTIONS (3)
  - Respiratory distress [Fatal]
  - Cardiac arrest [Fatal]
  - Wrong patient received product [Fatal]

NARRATIVE: CASE EVENT DATE: 20240411
